FAERS Safety Report 6426898-3 (Version None)
Quarter: 2009Q4

REPORT INFORMATION
  Report Type: 
  Country: None (occurrence: None)
  Receive Date: 20091103
  Receipt Date: 20091103
  Transmission Date: 20100525
  Serious: Yes (Hospitalization)
  Sender: FDA-Public Use
  Company Number: None

PATIENT
  Sex: Female
  Weight: 75 kg

DRUGS (2)
  1. NEXIUM [Suspect]
     Indication: GASTROOESOPHAGEAL REFLUX DISEASE
     Dosage: 40 MG ONE A DAY
     Dates: start: 20060101, end: 20060201
  2. TOPROL-XL [Concomitant]

REACTIONS (3)
  - CARDIAC ARREST [None]
  - DIZZINESS [None]
  - HEART RATE IRREGULAR [None]
